FAERS Safety Report 5531715-X (Version None)
Quarter: 2007Q4

REPORT INFORMATION
  Report Type: 
  Country: None (occurrence: None)
  Receive Date: 20071128
  Receipt Date: 20071120
  Transmission Date: 20080405
  Serious: Yes (Other)
  Sender: FDA-Public Use
  Company Number: CHPA2007US12526

PATIENT
  Sex: Male

DRUGS (1)
  1. BENEFIBER PLUS CALCIUM (NCH)(GUAR GUM, CALCIUM) CHEWABLE TABLET [Suspect]
     Dosage: ORAL
     Route: 048

REACTIONS (1)
  - RECTAL HAEMORRHAGE [None]
